FAERS Safety Report 16814009 (Version 4)
Quarter: 2020Q2

REPORT INFORMATION
  Report Type: Spontaneous
  Country: US (occurrence: US)
  Receive Date: 20190917
  Receipt Date: 20200611
  Transmission Date: 20200713
  Serious: No
  Sender: FDA-Public Use
  Company Number: US-PHARMING-PHAUS2019000465

PATIENT

DRUGS (2)
  1. RUCONEST [Suspect]
     Active Substance: HUMAN C1-ESTERASE INHIBITOR
     Dosage: 3000 IU INTERNATIONAL UNIT(S), ONCE WEEKLY AND AS NEEDED
     Route: 042
     Dates: start: 20180908
  2. RUCONEST [Suspect]
     Active Substance: HUMAN C1-ESTERASE INHIBITOR
     Indication: HEREDITARY ANGIOEDEMA
     Dosage: 3000 IU INTERNATIONAL UNIT(S), ONCE WEEKLY AND AS NEEDED
     Route: 042
     Dates: start: 20180908

REACTIONS (1)
  - Intentional product use issue [Unknown]
